FAERS Safety Report 7905064-6 (Version None)
Quarter: 2011Q4

REPORT INFORMATION
  Report Type: 
  Country: None (occurrence: None)
  Receive Date: 20111109
  Receipt Date: 20111104
  Transmission Date: 20120403
  Serious: Yes (Hospitalization)
  Sender: FDA-Public Use
  Company Number: PHHO2010CA09810

PATIENT
  Sex: Male
  Weight: 80.5 kg

DRUGS (2)
  1. TASIGNA [Suspect]
     Dosage: 400 MG QD
     Route: 048
     Dates: end: 20100720
  2. TASIGNA [Suspect]
     Indication: CHRONIC MYELOID LEUKAEMIA
     Dosage: 400 MG, BID
     Route: 048
     Dates: start: 20091123

REACTIONS (2)
  - CORONARY ARTERY DISEASE [None]
  - CHEST PAIN [None]
